FAERS Safety Report 14758526 (Version 4)
Quarter: 2018Q2

REPORT INFORMATION
  Report Type: Spontaneous
  Country: US (occurrence: US)
  Receive Date: 20180413
  Receipt Date: 20180510
  Transmission Date: 20180711
  Serious: Yes (Other)
  Sender: FDA-Public Use
  Company Number: US-ASTRAZENECA-2018SE45670

PATIENT
  Age: 62 Year
  Sex: Female
  Weight: 79.4 kg

DRUGS (15)
  1. HYDROXYZINE [Concomitant]
     Active Substance: HYDROXYZINE HYDROCHLORIDE
     Indication: SLEEP DISORDER
     Route: 048
     Dates: start: 2017
  2. LISINOPRIL. [Suspect]
     Active Substance: LISINOPRIL
     Indication: DIABETES MELLITUS
     Route: 048
     Dates: start: 1992
  3. URSODIOL FORTE [Concomitant]
     Active Substance: URSODIOL
     Indication: LIVER DISORDER
     Route: 048
     Dates: start: 2015
  4. DOXEPIN [Concomitant]
     Active Substance: DOXEPIN
     Indication: SLEEP DISORDER
     Dosage: 25 MG 1-2 TABS DAILY
     Route: 048
     Dates: start: 2017
  5. BYETTA [Suspect]
     Active Substance: EXENATIDE
     Indication: DIABETES MELLITUS
     Route: 058
     Dates: start: 2014
  6. TUDORZA PRESSAIR [Suspect]
     Active Substance: ACLIDINIUM BROMIDE
     Indication: CHRONIC OBSTRUCTIVE PULMONARY DISEASE
     Dosage: 400 MCG ONE INHALATION TWICE DAILY
     Route: 055
     Dates: start: 20180324
  7. CYCLOBENZAPRINE. [Concomitant]
     Active Substance: CYCLOBENZAPRINE
     Indication: SLEEP DISORDER
     Route: 048
     Dates: start: 2017
  8. HYDROCODONE [Concomitant]
     Active Substance: HYDROCODONE
     Indication: SLEEP DISORDER
     Dosage: 5-3.25, ONE OR TWO TABS AT NIGHT
     Route: 048
     Dates: start: 2017
  9. ALBUTEROL NEBULIZER [Concomitant]
     Active Substance: ALBUTEROL
     Indication: DYSPNOEA
     Dosage: AS REQUIRED
     Dates: start: 2016
  10. OXYGEN. [Concomitant]
     Active Substance: OXYGEN
     Indication: PROPHYLAXIS
     Dosage: 4.0IU UNKNOWN
  11. GLIPIZIDE METFORMIN [Concomitant]
     Indication: DIABETES MELLITUS
     Dosage: 2.5/500 MG TWO TABLET TWO TIMES A DAY
     Route: 048
  12. ALENDRONATE [Concomitant]
     Active Substance: ALENDRONATE SODIUM
     Indication: BONE DISORDER
     Route: 048
  13. LOVASTATIN. [Concomitant]
     Active Substance: LOVASTATIN
     Indication: DIABETES MELLITUS
     Dosage: 10.0MG UNKNOWN
     Route: 048
     Dates: start: 1992
  14. VENTOLIN [Concomitant]
     Active Substance: ALBUTEROL SULFATE
     Indication: CHRONIC OBSTRUCTIVE PULMONARY DISEASE
     Dosage: 2 INHALATIONS 2-4 TIMES A DAY AS NEEDED.
     Route: 055
     Dates: start: 2014
  15. TRAZODONE [Concomitant]
     Active Substance: TRAZODONE HYDROCHLORIDE
     Indication: SLEEP DISORDER
     Dosage: 50 MG 1-2 TABS DAILY
     Route: 048
     Dates: start: 2017

REACTIONS (13)
  - Diplopia [Unknown]
  - Bursitis [Unknown]
  - Device failure [Unknown]
  - Sleep disorder [Unknown]
  - Vision blurred [Unknown]
  - Tendonitis [Unknown]
  - Drug dose omission [Unknown]
  - Intentional product misuse [Unknown]
  - Osteoarthritis [Unknown]
  - Condition aggravated [Unknown]
  - Off label use [Unknown]
  - Sleep apnoea syndrome [Unknown]
  - Primary biliary cholangitis [Unknown]

NARRATIVE: CASE EVENT DATE: 2014
